FAERS Safety Report 21648992 (Version 1)
Quarter: 2022Q4

REPORT INFORMATION
  Report Type: Spontaneous
  Country: US (occurrence: US)
  Receive Date: 20221128
  Receipt Date: 20221128
  Transmission Date: 20230113
  Serious: Yes (Other)
  Sender: FDA-Public Use
  Company Number: US-ASTELLAS-2022US041714

PATIENT
  Age: 67 Year
  Sex: Male

DRUGS (1)
  1. PADCEV [Suspect]
     Active Substance: ENFORTUMAB VEDOTIN-EJFV
     Indication: Transitional cell carcinoma
     Dosage: 1 MG/KG, CYCLIC (DAYS 1, 8, 15)
     Route: 065
     Dates: start: 202107

REACTIONS (2)
  - Malignant neoplasm progression [Unknown]
  - Rash [Recovered/Resolved]
